FAERS Safety Report 17663963 (Version 1)
Quarter: 2020Q2

REPORT INFORMATION
  Report Type: Spontaneous
  Country: US (occurrence: US)
  Receive Date: 20200414
  Receipt Date: 20200414
  Transmission Date: 20200713
  Serious: Yes (Hospitalization, Other)
  Sender: FDA-Public Use
  Company Number: US-CIPLA LTD.-2020US02583

PATIENT

DRUGS (2)
  1. ZOLPIDEM TARTRATE. [Suspect]
     Active Substance: ZOLPIDEM TARTRATE
     Indication: INSOMNIA
     Dosage: UNK
     Route: 065
  2. GABAPENTIN. [Suspect]
     Active Substance: GABAPENTIN
     Indication: INSOMNIA
     Dosage: UNK, UNKNOWN AMOUNT
     Route: 065

REACTIONS (8)
  - Accidental overdose [Unknown]
  - Drug ineffective [Unknown]
  - Confusional state [Recovering/Resolving]
  - Memory impairment [Unknown]
  - Fall [Unknown]
  - Balance disorder [Unknown]
  - Intentional product use issue [Unknown]
  - Substance abuse [Unknown]
